FAERS Safety Report 7119197-8 (Version None)
Quarter: 2010Q4

REPORT INFORMATION
  Report Type: 
  Country: None (occurrence: None)
  Receive Date: 20101123
  Receipt Date: 20100331
  Transmission Date: 20110411
  Serious: No
  Sender: FDA-Public Use
  Company Number: US-MYLANLABS-2010S1005578

PATIENT
  Age: 48 Year
  Sex: Male

DRUGS (2)
  1. MAXZIDE [Suspect]
     Route: 048
     Dates: start: 20080101
  2. LISINOPRIL [Concomitant]
     Route: 048

REACTIONS (1)
  - DRUG SCREEN POSITIVE [None]
